FAERS Safety Report 13574673 (Version 2)
Quarter: 2017Q2

REPORT INFORMATION
  Report Type: Report from Study
  Country: US (occurrence: US)
  Receive Date: 20170523
  Receipt Date: 20170601
  Transmission Date: 20170830
  Serious: Yes (Hospitalization)
  Sender: FDA-Public Use
  Company Number: US-ACTELION-A-US2017-154077

PATIENT
  Age: 47 Year
  Sex: Female

DRUGS (10)
  1. OPSUMIT [Suspect]
     Active Substance: MACITENTAN
     Indication: PULMONARY ARTERIAL HYPERTENSION
     Dosage: 10 MG, UNK
     Route: 048
     Dates: start: 20170425
  2. LEVOTHYROXINE. [Concomitant]
     Active Substance: LEVOTHYROXINE
     Dosage: 10 MG, QD
  3. ASPIRIN. [Concomitant]
     Active Substance: ASPIRIN
     Dosage: 81 MG, UNK
  4. AMLODIPINE [Concomitant]
     Active Substance: AMLODIPINE BESYLATE
  5. HYDROXINE [Concomitant]
     Active Substance: HYDROXYZINE HYDROCHLORIDE
     Dosage: 10 MG, QD
  6. CEPHALEXIN. [Concomitant]
     Active Substance: CEPHALEXIN
  7. ONDANSETRAN [Concomitant]
     Active Substance: ONDANSETRON HYDROCHLORIDE
  8. OXYCODONE [Concomitant]
     Active Substance: OXYCODONE
  9. SMZ-TMP [Concomitant]
     Active Substance: SULFAMETHOXAZOLE\TRIMETHOPRIM
  10. FUROSEMIDE. [Concomitant]
     Active Substance: FUROSEMIDE

REACTIONS (7)
  - Influenza [Unknown]
  - Bronchitis [Unknown]
  - Respiratory tract congestion [Recovered/Resolved]
  - Feeling abnormal [Recovered/Resolved]
  - Cough [Recovered/Resolved]
  - Throat tightness [Recovered/Resolved]
  - Malaise [Recovered/Resolved]

NARRATIVE: CASE EVENT DATE: 201704
